FAERS Safety Report 16308061 (Version 1)
Quarter: 2020Q3

REPORT INFORMATION
  Report Type: Spontaneous
  Country: JP (occurrence: JP)
  Receive Date: 20190514
  Receipt Date: 20190514
  Transmission Date: 20201105
  Serious: Yes (Other)
  Sender: FDA-Public Use
  Company Number: JP-TEVA-2019-JP-1049499

PATIENT
  Age: 74 Year
  Sex: Female

DRUGS (9)
  1. PREDNISOLONE. [Suspect]
     Active Substance: PREDNISOLONE
     Indication: INTERSTITIAL LUNG DISEASE
     Route: 065
  2. ALECTINIB. [Suspect]
     Active Substance: ALECTINIB
     Indication: NON-SMALL CELL LUNG CANCER
     Route: 065
  3. ALECTINIB. [Suspect]
     Active Substance: ALECTINIB
     Indication: ADENOCARCINOMA
  4. INSULIN [Concomitant]
     Active Substance: INSULIN NOS
     Indication: TYPE 2 DIABETES MELLITUS
     Dosage: DOSE: 18 UNITS/DAY (CONCURRENT WITH ALECTINIB)
     Route: 065
  5. INSULIN [Concomitant]
     Active Substance: INSULIN NOS
     Dosage: DOSE: 24 UNITS/DAY (FOLLOWING PREDNISOLONE CESSATION)
     Route: 065
  6. CERITINIB [Suspect]
     Active Substance: CERITINIB
     Indication: ADENOCARCINOMA
  7. CERITINIB [Suspect]
     Active Substance: CERITINIB
     Indication: NON-SMALL CELL LUNG CANCER
     Route: 065
  8. INSULIN [Concomitant]
     Active Substance: INSULIN NOS
     Dosage: DOSE: 29 UNITS/DAY (CONCURRENT WITH PREDNISOLONE)
     Route: 065
  9. INSULIN [Concomitant]
     Active Substance: INSULIN NOS
     Dosage: DOSE: 64 UNITS/DAY (CONCURRENT WITH CERITINIB)
     Route: 065

REACTIONS (4)
  - Hyperglycaemia [Unknown]
  - Insulin resistance [Unknown]
  - Interstitial lung disease [Unknown]
  - Condition aggravated [Unknown]
